FAERS Safety Report 8300552-5 (Version None)
Quarter: 2012Q2

REPORT INFORMATION
  Report Type: 
  Country: None (occurrence: None)
  Receive Date: 20120417
  Receipt Date: 20120409
  Transmission Date: 20120825
  Serious: Yes (Other)
  Sender: FDA-Public Use
  Company Number: DSA_48852_2012

PATIENT
  Sex: Male

DRUGS (9)
  1. XENAZINE [Suspect]
     Indication: TARDIVE DYSKINESIA
     Dosage: (1/2 TABLET; ORAL) ; (25 MG TID ORAL)
     Route: 048
     Dates: start: 20120104
  2. XENAZINE [Suspect]
     Indication: TARDIVE DYSKINESIA
     Dosage: (1/2 TABLET; ORAL) ; (25 MG TID ORAL)
     Route: 048
     Dates: start: 20120101
  3. BENADRYL [Concomitant]
  4. CARBAMAZEPINE [Concomitant]
  5. LAMOTRGINE [Concomitant]
  6. NEXIUM [Concomitant]
  7. NORVASC [Concomitant]
  8. INDERAL LA [Concomitant]
  9. FLONASE [Concomitant]

REACTIONS (3)
  - NEURALGIA [None]
  - DRUG INEFFECTIVE [None]
  - MUSCLE SPASMS [None]
